FAERS Safety Report 4635829-8 (Version None)
Quarter: 2005Q2

REPORT INFORMATION
  Report Type: 
  Country: None (occurrence: None)
  Receive Date: 20050413
  Receipt Date: 20050404
  Transmission Date: 20051028
  Serious: Yes (Other)
  Sender: FDA-Public Use
  Company Number: 235967K04USA

PATIENT
  Age: 53 Year
  Sex: Female

DRUGS (4)
  1. REBIF [Suspect]
     Indication: MULTIPLE SCLEROSIS
     Dosage: 44 MCG, 3 IN 1 WEEKS, SUBCUTANEOUS
     Route: 058
     Dates: start: 20030912
  2. NEURONTIN [Concomitant]
  3. FENTANYL [Concomitant]
  4. UNSPECIFIED PATCH (ALL OTHER THERAPEUTIC PRODUCTS) [Concomitant]

REACTIONS (5)
  - BLOOD GLUCOSE DECREASED [None]
  - CONVULSION [None]
  - DRUG INEFFECTIVE [None]
  - RED BLOOD CELL COUNT DECREASED [None]
  - URINARY INCONTINENCE [None]
